FAERS Safety Report 24777551 (Version 2)
Quarter: 2024Q4

REPORT INFORMATION
  Report Type: Spontaneous
  Country: TN (occurrence: TN)
  Receive Date: 20241226
  Receipt Date: 20241231
  Transmission Date: 20250114
  Serious: Yes (Other)
  Sender: BAXTER
  Company Number: TN-BAXTER-2017BAX040309

PATIENT
  Age: 8 Year
  Sex: Female

DRUGS (1)
  1. METRONIDAZOLE [Suspect]
     Active Substance: METRONIDAZOLE
     Indication: Amoebic dysentery
     Dosage: UNK
     Route: 048

REACTIONS (6)
  - Visual acuity reduced [Recovering/Resolving]
  - Diplopia [Recovered/Resolved]
  - Headache [Recovered/Resolved]
  - Vomiting [Recovered/Resolved]
  - Neurotoxicity [Recovered/Resolved]
  - Optic neuropathy [Recovered/Resolved]
